FAERS Safety Report 12775792 (Version 1)
Quarter: 2016Q3

REPORT INFORMATION
  Report Type: Spontaneous
  Country: GB (occurrence: GB)
  Receive Date: 20160923
  Receipt Date: 20160923
  Transmission Date: 20161109
  Serious: Yes (Disabling)
  Sender: FDA-Public Use
  Company Number: GB-ASTRAZENECA-2016SE98424

PATIENT
  Age: 59 Year
  Sex: Female
  Weight: 79 kg

DRUGS (18)
  1. ATORVASTATIN [Concomitant]
     Active Substance: ATORVASTATIN
     Dates: start: 20160422
  2. BECLOMETASONE [Concomitant]
     Active Substance: BECLOMETHASONE DIPROPIONATE
     Dates: start: 20160610, end: 20160708
  3. FEXOFENADINE [Concomitant]
     Active Substance: FEXOFENADINE\FEXOFENADINE HYDROCHLORIDE
     Dates: start: 20160422
  4. METOCLOPRAMIDE. [Concomitant]
     Active Substance: METOCLOPRAMIDE
     Dates: start: 20151124
  5. CETIRIZINE [Concomitant]
     Active Substance: CETIRIZINE HYDROCHLORIDE
     Dates: start: 20160719, end: 20160816
  6. HUMALOG [Concomitant]
     Active Substance: INSULIN LISPRO
     Dosage: USE AS DIRECTED
     Dates: start: 20151124
  7. DAPAGLIFLOZIN [Suspect]
     Active Substance: DAPAGLIFLOZIN
     Route: 048
     Dates: start: 20160616
  8. ACICLOVIR [Concomitant]
     Active Substance: ACYCLOVIR
     Dates: start: 20160307
  9. AMOXICILLIN. [Concomitant]
     Active Substance: AMOXICILLIN
     Dates: start: 20160719, end: 20160724
  10. ELLESTE-SOLO [Concomitant]
     Dates: start: 20160905
  11. ELLESTE-SOLO [Concomitant]
     Dosage: ESTRADIOL, 1 DF EVERY DAY
     Dates: start: 20160129
  12. VENLALIC XL [Concomitant]
     Active Substance: VENLAFAXINE HYDROCHLORIDE
     Dates: start: 20160726, end: 20160823
  13. VENTOLIN [Concomitant]
     Active Substance: ALBUTEROL SULFATE
     Dosage: 2.0DF UNKNOWN
     Route: 055
     Dates: start: 20151223
  14. DEEP HEAT [Concomitant]
     Dates: start: 20160628, end: 20160629
  15. LANSOPRAZOLE. [Concomitant]
     Active Substance: LANSOPRAZOLE
     Dates: start: 20160129
  16. MOMETASONE [Concomitant]
     Active Substance: MOMETASONE
     Dates: start: 20160719, end: 20160720
  17. BETAHISTINE [Concomitant]
     Active Substance: BETAHISTINE
     Dates: start: 20160616, end: 20160714
  18. BECONASE AQ [Concomitant]
     Active Substance: BECLOMETHASONE DIPROPIONATE MONOHYDRATE
     Dosage: 2.0DF UNKNOWN
     Dates: start: 20160905

REACTIONS (1)
  - Diarrhoea [Not Recovered/Not Resolved]

NARRATIVE: CASE EVENT DATE: 20160823
